FAERS Safety Report 6369932-1 (Version None)
Quarter: 2009Q3

REPORT INFORMATION
  Report Type: 
  Country: None (occurrence: None)
  Receive Date: 20090923
  Receipt Date: 20070619
  Transmission Date: 20100115
  Serious: Yes (Other)
  Sender: FDA-Public Use
  Company Number: US-ASTRAZENECA-2006UW11392

PATIENT
  Age: 13963 Day
  Sex: Female
  Weight: 105.2 kg

DRUGS (15)
  1. SEROQUEL [Suspect]
     Indication: SCHIZOPHRENIA
     Route: 048
     Dates: start: 19960101
  2. SEROQUEL [Suspect]
     Indication: DEPRESSION
     Route: 048
     Dates: start: 19960101
  3. SEROQUEL [Suspect]
     Route: 048
     Dates: start: 20060308
  4. SEROQUEL [Suspect]
     Route: 048
     Dates: start: 20060308
  5. SEROQUEL [Suspect]
     Route: 048
     Dates: start: 20070129
  6. SEROQUEL [Suspect]
     Route: 048
     Dates: start: 20070129
  7. ZYPREXA SYMBYAX [Concomitant]
  8. DOXEPIN HCL [Concomitant]
     Dates: start: 20060220
  9. DOXEPIN HCL [Concomitant]
     Dosage: INCREASE DOXEPIN 25 MG ONE TABLET IN THE MORNING AND 25 MG TWO TABLET IN THE EVENING
     Dates: start: 20060313
  10. ZYPREXA [Concomitant]
     Dates: start: 20060220, end: 20060410
  11. DEPAKOTE [Concomitant]
     Dates: start: 20060220
  12. RISPERDAL [Concomitant]
     Dates: start: 20060220
  13. RISPERDAL [Concomitant]
  14. FUROSEMIDE [Concomitant]
     Dosage: 40 MG DISPENSED
     Dates: start: 20060405
  15. TRIGLIDE [Concomitant]
     Dosage: 160 MG DISPENSED
     Dates: start: 20060510

REACTIONS (2)
  - DIABETIC KETOACIDOSIS [None]
  - TYPE 2 DIABETES MELLITUS [None]
